FAERS Safety Report 5239972-4 (Version None)
Quarter: 2007Q1

REPORT INFORMATION
  Report Type: 
  Country: None (occurrence: None)
  Receive Date: 20070216
  Receipt Date: 20070213
  Transmission Date: 20070707
  Serious: Yes (Other)
  Sender: FDA-Public Use
  Company Number: US-AMGEN-US201828

PATIENT
  Sex: Male

DRUGS (5)
  1. EPOGEN [Suspect]
     Indication: DIALYSIS
     Route: 042
     Dates: end: 20060101
  2. PHOSLO [Concomitant]
     Route: 065
  3. NEXIUM [Concomitant]
     Route: 065
  4. COLACE [Concomitant]
     Route: 065
  5. NIACIN [Concomitant]
     Route: 065

REACTIONS (1)
  - BONE MARROW FAILURE [None]
